FAERS Safety Report 21053483 (Version 1)
Quarter: 2022Q3

REPORT INFORMATION
  Report Type: Spontaneous
  Country: US (occurrence: None)
  Receive Date: 20220707
  Receipt Date: 20220707
  Transmission Date: 20221026
  Serious: Yes (Other)
  Sender: FDA-Public Use
  Company Number: None

PATIENT
  Age: 45 Year
  Sex: Female

DRUGS (1)
  1. SULFASALAZINE [Suspect]
     Active Substance: SULFASALAZINE
     Dosage: OTHER QUANTITY : 4 TABLET(S);?FREQUENCY : TWICE A DAY;?
     Route: 048
     Dates: start: 20220526, end: 20220705

REACTIONS (10)
  - Adverse reaction [None]
  - Fatigue [None]
  - Asthenia [None]
  - Dizziness [None]
  - Decreased appetite [None]
  - Chromaturia [None]
  - Faeces discoloured [None]
  - Faeces pale [None]
  - Skin disorder [None]
  - Rash [None]

NARRATIVE: CASE EVENT DATE: 20220705
